FAERS Safety Report 19480825 (Version 1)
Quarter: 2021Q2

REPORT INFORMATION
  Report Type: Spontaneous
  Country: DK (occurrence: DK)
  Receive Date: 20210630
  Receipt Date: 20210630
  Transmission Date: 20210717
  Serious: Yes (Hospitalization)
  Sender: FDA-Public Use
  Company Number: DK-GILEAD-2021-0538648

PATIENT
  Age: 51 Year
  Sex: Female

DRUGS (2)
  1. DEXAMETHASON CF [DEXAMETHASONE] [Concomitant]
     Indication: COVID-19
     Dosage: UNK
     Dates: start: 20210528
  2. VEKLURY [Suspect]
     Active Substance: REMDESIVIR
     Indication: COVID-19
     Dosage: DOSAGE: 200 MG DAY 1, AFTERWARDS 100 MG X 1 DAILY STRENGTH: 100 MG
     Route: 065
     Dates: start: 20210528, end: 20210601

REACTIONS (1)
  - Bradycardia [Unknown]

NARRATIVE: CASE EVENT DATE: 20210528
